FAERS Safety Report 8013251-4 (Version None)
Quarter: 2011Q4

REPORT INFORMATION
  Report Type: 
  Country: None (occurrence: None)
  Receive Date: 20111229
  Receipt Date: 20111229
  Transmission Date: 20120403
  Serious: Yes (Other)
  Sender: FDA-Public Use
  Company Number: None

PATIENT
  Age: 38 Year
  Sex: Male
  Weight: 68.038 kg

DRUGS (1)
  1. ABILIFY [Suspect]
     Indication: BIPOLAR DISORDER
     Dosage: 5MG-15MG
     Dates: start: 20100423, end: 20101015

REACTIONS (5)
  - DYSTONIA [None]
  - NECK PAIN [None]
  - BACK PAIN [None]
  - IMPAIRED WORK ABILITY [None]
  - TORTICOLLIS [None]
